FAERS Safety Report 6892803-9 (Version None)
Quarter: 2010Q3

REPORT INFORMATION
  Report Type: 
  Country: None (occurrence: None)
  Receive Date: 20100731
  Receipt Date: 20080919
  Transmission Date: 20110219
  Serious: No
  Sender: FDA-Public Use
  Company Number: US-PFIZER INC-2008076182

PATIENT
  Sex: Male
  Weight: 81.363 kg

DRUGS (8)
  1. CAVERJECT [Suspect]
     Indication: ERECTILE DYSFUNCTION
     Dates: start: 20080828
  2. KLONOPIN [Concomitant]
  3. NORVASC [Concomitant]
  4. HYDROCHLOROTHIAZIDE [Concomitant]
  5. FISH OIL [Concomitant]
  6. MONTELUKAST SODIUM [Concomitant]
  7. RED YEAST RICE [Concomitant]
  8. ADVAIR DISKUS 100/50 [Concomitant]
     Dosage: 250/50

REACTIONS (3)
  - DRUG INEFFECTIVE [None]
  - UNDERDOSE [None]
  - WRONG TECHNIQUE IN DRUG USAGE PROCESS [None]
